FAERS Safety Report 4444387-2 (Version None)
Quarter: 2004Q3

REPORT INFORMATION
  Report Type: 
  Country: None (occurrence: None)
  Receive Date: 20040729
  Receipt Date: 20030925
  Transmission Date: 20050211
  Serious: Yes (Death)
  Sender: FDA-Public Use
  Company Number: 2003UW12224

PATIENT
  Age: 44 Year

DRUGS (1)
  1. ELAVIL [Suspect]

REACTIONS (1)
  - COMPLETED SUICIDE [None]
